FAERS Safety Report 8181426-X (Version None)
Quarter: 2012Q1

REPORT INFORMATION
  Report Type: 
  Country: None (occurrence: None)
  Receive Date: 20120302
  Receipt Date: 20120228
  Transmission Date: 20120608
  Serious: Yes (Hospitalization, Other)
  Sender: FDA-Public Use
  Company Number: DE-AMGEN-DEUSP2012001868

PATIENT
  Age: 72 Year
  Sex: Male
  Weight: 94 kg

DRUGS (8)
  1. KALINOR                            /00031402/ [Concomitant]
  2. TAMSULOSIN HCL [Concomitant]
     Dosage: 0.4 UNK, UNK
  3. LASIX [Concomitant]
     Dosage: 40 UNK, UNK
  4. PANTOZOL                           /01263204/ [Concomitant]
     Dosage: 20 UNK, UNK
  5. LIQUIFILM [Concomitant]
  6. SPIRIVA [Concomitant]
     Dosage: 18 UNK, UNK
  7. ZOPICLONE [Concomitant]
     Dosage: 7.5 UNK, UNK
  8. NPLATE [Suspect]
     Indication: IDIOPATHIC THROMBOCYTOPENIC PURPURA
     Dosage: UNK, Q2WK
     Route: 058
     Dates: start: 20090501, end: 20111213

REACTIONS (3)
  - CEREBROVASCULAR ACCIDENT [None]
  - CAROTID ARTERY INSUFFICIENCY [None]
  - PLATELET COUNT DECREASED [None]
